FAERS Safety Report 6688933-7 (Version None)
Quarter: 2010Q2

REPORT INFORMATION
  Report Type: 
  Country: None (occurrence: None)
  Receive Date: 20100420
  Receipt Date: 20100407
  Transmission Date: 20101027
  Serious: Yes (Hospitalization)
  Sender: FDA-Public Use
  Company Number: US-ELI_LILLY_AND_COMPANY-US201002001992

PATIENT
  Sex: Male

DRUGS (14)
  1. FORTEO [Suspect]
     Indication: OSTEOPOROSIS
     Dosage: 20 UG, DAILY (1/D)
     Route: 065
  2. RANEXA [Concomitant]
     Dosage: UNK, UNKNOWN
     Route: 065
  3. NORVASC [Concomitant]
     Dosage: UNK, UNKNOWN
     Route: 065
  4. PREDNISONE TAB [Concomitant]
     Dosage: UNK, UNKNOWN
     Route: 065
  5. IMURAN [Concomitant]
     Dosage: UNK, UNKNOWN
     Route: 065
  6. XANAX [Concomitant]
     Dosage: UNK, UNKNOWN
     Route: 065
  7. ASPIRIN [Concomitant]
     Dosage: UNK, UNKNOWN
     Route: 065
  8. CENTRUM SILVER [Concomitant]
     Dosage: UNK, UNKNOWN
     Route: 065
  9. FISH OIL [Concomitant]
     Dosage: UNK, UNKNOWN
     Route: 065
  10. LIPITOR [Concomitant]
     Dosage: UNK, UNKNOWN
     Route: 065
  11. BACTRIM [Concomitant]
     Dosage: UNK, UNKNOWN
     Route: 065
  12. PROPRANOLOL [Concomitant]
     Dosage: UNK, UNKNOWN
     Route: 065
  13. NEXIUM [Concomitant]
     Dosage: UNK, UNKNOWN
     Route: 065
  14. RESTORIL [Concomitant]
     Indication: SLEEP DISORDER
     Dosage: UNK, UNKNOWN
     Route: 065

REACTIONS (3)
  - CHEST DISCOMFORT [None]
  - CHEST PAIN [None]
  - HOSPITALISATION [None]
